FAERS Safety Report 8858575 (Version 5)
Quarter: 2014Q2

REPORT INFORMATION
  Report Type: Spontaneous
  Country: US (occurrence: US)
  Receive Date: 20121024
  Receipt Date: 20140616
  Transmission Date: 20141212
  Serious: Yes (Disabling)
  Sender: FDA-Public Use
  Company Number: US-MERCK-1210USA008916

PATIENT
  Sex: Male
  Weight: 96.6 kg

DRUGS (1)
  1. PROPECIA [Suspect]
     Indication: ANDROGENETIC ALOPECIA
     Dosage: 1 MG, QD
     Route: 048
     Dates: start: 200502, end: 200605

REACTIONS (24)
  - Male genital atrophy [Unknown]
  - Cognitive disorder [Unknown]
  - Amnesia [Unknown]
  - Fatigue [Unknown]
  - Lethargy [Unknown]
  - Ligament sprain [Not Recovered/Not Resolved]
  - Orgasm abnormal [Unknown]
  - Semen analysis abnormal [Unknown]
  - Erectile dysfunction [Unknown]
  - Libido decreased [Unknown]
  - Orgasmic sensation decreased [Unknown]
  - Pneumonia [Recovering/Resolving]
  - Stress [Unknown]
  - Gastrooesophageal reflux disease [Unknown]
  - Osteoarthritis [Unknown]
  - Tendon discomfort [Unknown]
  - Knee operation [Unknown]
  - Tendon operation [Unknown]
  - Arthroscopy [Unknown]
  - Polyuria [Unknown]
  - Polydipsia [Unknown]
  - Hyperphagia [Unknown]
  - Ejaculation disorder [Unknown]
  - Sexual dysfunction [Unknown]
